FAERS Safety Report 10363251 (Version 1)
Quarter: 2014Q3

REPORT INFORMATION
  Report Type: Spontaneous
  Country: FR (occurrence: FR)
  Receive Date: 20140805
  Receipt Date: 20140805
  Transmission Date: 20150326
  Serious: Yes (Hospitalization)
  Sender: FDA-Public Use
  Company Number: FR-ASTRAZENECA-2014SE56150

PATIENT
  Age: 30866 Day
  Sex: Female

DRUGS (9)
  1. CRESTOR [Suspect]
     Active Substance: ROSUVASTATIN CALCIUM
     Route: 048
     Dates: end: 20140606
  2. LISINOPRIL DIHYDRATE [Suspect]
     Active Substance: LISINOPRIL
     Route: 048
  3. KESTIN [Concomitant]
     Active Substance: EBASTINE
  4. KARDEGIC [Concomitant]
     Active Substance: ASPIRIN LYSINE
  5. NOCTAMIDE [Suspect]
     Active Substance: LORMETAZEPAM
     Route: 048
  6. DAFALGAN [Concomitant]
     Active Substance: ACETAMINOPHEN
  7. HYDROCHLOROTHIAZIDE (NON-AZ PRODUCT) [Suspect]
     Active Substance: HYDROCHLOROTHIAZIDE
     Route: 048
     Dates: start: 2012, end: 20140606
  8. RABEPRAZOLE SODIQUE [Concomitant]
  9. FRAGMINE [Concomitant]
     Active Substance: DALTEPARIN SODIUM
     Dosage: 5000 IU ANTI IX A/ 0.2 ML

REACTIONS (7)
  - Hypertension [Unknown]
  - Fall [Unknown]
  - Muscle spasms [Recovered/Resolved]
  - Hypotension [Recovered/Resolved]
  - Ventricular extrasystoles [Unknown]
  - Malaise [Recovered/Resolved]
  - Disorientation [Unknown]

NARRATIVE: CASE EVENT DATE: 20140601
